FAERS Safety Report 4987966-6 (Version None)
Quarter: 2006Q2

REPORT INFORMATION
  Report Type: 
  Country: None (occurrence: None)
  Receive Date: 20060424
  Receipt Date: 20060411
  Transmission Date: 20061013
  Serious: Yes (Hospitalization, Disabling)
  Sender: FDA-Public Use
  Company Number: 2006-141180-NL

PATIENT
  Age: 12 Year
  Sex: Female

DRUGS (1)
  1. DEXAMETHASONE SODIUM PHOSPHATE [Suspect]

REACTIONS (4)
  - ARTHRALGIA [None]
  - OSTEONECROSIS [None]
  - PAIN [None]
  - WHEELCHAIR USER [None]
